FAERS Safety Report 7649897-2 (Version None)
Quarter: 2011Q3

REPORT INFORMATION
  Report Type: 
  Country: None (occurrence: None)
  Receive Date: 20110802
  Receipt Date: 20110718
  Transmission Date: 20111222
  Serious: Yes (Other)
  Sender: FDA-Public Use
  Company Number: US-ELI_LILLY_AND_COMPANY-US201012005195

PATIENT
  Sex: Female
  Weight: 54.422 kg

DRUGS (5)
  1. ZOLPIDEM [Concomitant]
     Dosage: 12.5 MG, UNK
  2. FORTEO [Suspect]
     Indication: OSTEOPOROSIS
     Dosage: 20 UG, DAILY (1/D)
     Route: 065
     Dates: start: 20101210
  3. FORTEO [Suspect]
     Dosage: 20 UG, QD
     Route: 065
  4. FORTEO [Suspect]
     Dosage: 20 UG, QD
     Route: 065
  5. BENAZEPRIL HCT [Concomitant]
     Indication: BLOOD PRESSURE ABNORMAL

REACTIONS (5)
  - HEADACHE [None]
  - PAIN [None]
  - COMPRESSION FRACTURE [None]
  - PAIN IN EXTREMITY [None]
  - NAUSEA [None]
